FAERS Safety Report 7357432-1 (Version None)
Quarter: 2011Q1

REPORT INFORMATION
  Report Type: 
  Country: None (occurrence: None)
  Receive Date: 20110317
  Receipt Date: 20110220
  Transmission Date: 20110831
  Serious: No
  Sender: FDA-Public Use
  Company Number: US-B.I. PHARMACEUTICALS,INC./RIDGEFIELD-2011-BP-06414BP

PATIENT
  Age: 60 Year
  Sex: Female

DRUGS (6)
  1. TRAZODONE [Concomitant]
     Indication: SLEEP APNOEA SYNDROME
  2. ALPRAZOLAM [Concomitant]
     Indication: ANXIETY
     Dosage: 0.5 MG
  3. ATENOLOL [Concomitant]
     Indication: HYPERTENSION
     Dosage: 25 MG
  4. ZANTAC 150 [Suspect]
     Indication: DYSPEPSIA
     Dosage: 300 MG
     Route: 048
     Dates: start: 20101201
  5. TRAZODONE [Concomitant]
     Indication: ANXIETY
  6. CITALOPRAM HYDROBROMIDE [Concomitant]
     Indication: DEPRESSION
     Dosage: 120 MG

REACTIONS (1)
  - FAECES DISCOLOURED [None]
